FAERS Safety Report 8922189 (Version 2)
Quarter: 2013Q1

REPORT INFORMATION
  Report Type: Report from Study
  Country: US (occurrence: US)
  Receive Date: 20121123
  Receipt Date: 20130111
  Transmission Date: 20140127
  Serious: Yes (Hospitalization)
  Sender: FDA-Public Use
  Company Number: US-SANOFI-AVENTIS-2012SA083075

PATIENT
  Age: 73 Year
  Sex: Female
  Weight: 85.21 kg

DRUGS (11)
  1. DOCETAXEL [Suspect]
     Indication: NEOPLASM MALIGNANT
     Route: 041
     Dates: start: 20121001, end: 20121001
  2. RALOXIFENE [Concomitant]
  3. ASPIRIN [Concomitant]
  4. BENEFIBER [Concomitant]
  5. CELEXA [Concomitant]
  6. XANAX [Concomitant]
  7. FLEXERIL [Concomitant]
  8. ADVAIR [Concomitant]
  9. METOPROLOL [Concomitant]
  10. SPIRIVA [Concomitant]
  11. TRAZODONE [Concomitant]

REACTIONS (4)
  - Balance disorder [Recovered/Resolved]
  - Vision blurred [Recovered/Resolved]
  - Febrile neutropenia [Recovered/Resolved]
  - Abdominal pain [Recovered/Resolved]
